FAERS Safety Report 9899549 (Version 1)
Quarter: 2014Q1

REPORT INFORMATION
  Report Type: Report from Study
  Country: US (occurrence: US)
  Receive Date: 20140214
  Receipt Date: 20140214
  Transmission Date: 20141002
  Serious: Yes (Other)
  Sender: FDA-Public Use
  Company Number: US-ABBVIE-14P-163-1198130-00

PATIENT
  Age: 69 Year
  Sex: Female
  Weight: 83.99 kg

DRUGS (7)
  1. HUMIRA [Suspect]
     Indication: RHEUMATOID ARTHRITIS
     Route: 058
     Dates: start: 2002
  2. HUMIRA [Suspect]
  3. OMEPRAZOLE [Concomitant]
     Indication: GASTROOESOPHAGEAL REFLUX DISEASE
  4. LISINOPRIL/HCTZ [Concomitant]
     Indication: HYPERTENSION
  5. SYNTHROID [Concomitant]
     Indication: HYPOTHYROIDISM
  6. EVOXAC [Concomitant]
     Indication: SJOGREN^S SYNDROME
  7. EVOXAC [Concomitant]
     Indication: DRY EYE

REACTIONS (6)
  - Tendon rupture [Not Recovered/Not Resolved]
  - Nasopharyngitis [Recovering/Resolving]
  - Rhinorrhoea [Recovering/Resolving]
  - Oropharyngeal pain [Recovering/Resolving]
  - Pyrexia [Recovered/Resolved]
  - Chest discomfort [Recovering/Resolving]
